FAERS Safety Report 12307952 (Version 5)
Quarter: 2017Q3

REPORT INFORMATION
  Report Type: Report from Study
  Country: US (occurrence: US)
  Receive Date: 20160426
  Receipt Date: 20170816
  Transmission Date: 20171127
  Serious: Yes (Hospitalization)
  Sender: FDA-Public Use
  Company Number: US-ACTELION-A-NJ2016-135120

PATIENT
  Age: 57 Year
  Sex: Male
  Weight: 107.94 kg

DRUGS (1)
  1. OPSUMIT [Suspect]
     Active Substance: MACITENTAN
     Indication: PULMONARY ARTERIAL HYPERTENSION
     Dosage: 10 MG, QD
     Route: 048
     Dates: start: 20160125

REACTIONS (15)
  - Lower limb fracture [Unknown]
  - Fall [Unknown]
  - Dehydration [Unknown]
  - Tibia fracture [Unknown]
  - Fibula fracture [Unknown]
  - Feeling hot [Unknown]
  - Hypercapnia [Unknown]
  - Peripheral swelling [Unknown]
  - Seizure [Unknown]
  - Somnolence [Unknown]
  - Fracture treatment [Unknown]
  - Cellulitis [Unknown]
  - Pyrexia [Unknown]
  - Hypotension [Unknown]
  - Renal failure [Unknown]

NARRATIVE: CASE EVENT DATE: 201707
